FAERS Safety Report 4755009-5 (Version None)
Quarter: 2005Q3

REPORT INFORMATION
  Report Type: 
  Country: None (occurrence: None)
  Receive Date: 20050829
  Receipt Date: 20050823
  Transmission Date: 20060218
  Serious: Yes (Other)
  Sender: FDA-Public Use
  Company Number: PHEH2005US09422

PATIENT
  Age: 80 Year
  Sex: Female

DRUGS (1)
  1. ZELNORM [Suspect]
     Route: 048
     Dates: start: 20050823, end: 20050823

REACTIONS (2)
  - DIARRHOEA [None]
  - DIZZINESS [None]
